FAERS Safety Report 25124809 (Version 1)
Quarter: 2025Q1

REPORT INFORMATION
  Report Type: Spontaneous
  Country: HU (occurrence: HU)
  Receive Date: 20250326
  Receipt Date: 20250326
  Transmission Date: 20250408
  Serious: Yes (Other)
  Sender: MYLAN
  Company Number: HU-ROCHE-10000223760

PATIENT

DRUGS (3)
  1. TACROLIMUS [Suspect]
     Active Substance: TACROLIMUS
     Indication: Product used for unknown indication
  2. BUDESONIDE [Suspect]
     Active Substance: BUDESONIDE
     Indication: Product used for unknown indication
  3. CELLCEPT [Suspect]
     Active Substance: MYCOPHENOLATE MOFETIL
     Indication: Product used for unknown indication

REACTIONS (6)
  - Alanine aminotransferase increased [Unknown]
  - Pancreatic disorder [Unknown]
  - Suicidal ideation [Unknown]
  - Gastrointestinal disorder [Unknown]
  - Tendonitis [Unknown]
  - Osteopenia [Unknown]
